FAERS Safety Report 10871853 (Version 1)
Quarter: 2015Q1

REPORT INFORMATION
  Report Type: Report from Study
  Country: JP (occurrence: JP)
  Receive Date: 20150226
  Receipt Date: 20150226
  Transmission Date: 20150721
  Serious: Yes (Death)
  Sender: FDA-Public Use
  Company Number: JP-ABBVIE-15P-087-1352766-00

PATIENT
  Age: 56 Year
  Sex: Female
  Weight: 47 kg

DRUGS (5)
  1. LIPACREON CAPSULES 150MG [Suspect]
     Active Substance: PANCRELIPASE
     Indication: PANCREATIC INSUFFICIENCY
     Route: 065
     Dates: start: 20130125, end: 20130530
  2. LIPACREON CAPSULES 150MG [Suspect]
     Active Substance: PANCRELIPASE
     Route: 065
     Dates: start: 20130531, end: 20130626
  3. LIPACREON CAPSULES 150MG [Suspect]
     Active Substance: PANCRELIPASE
     Route: 065
     Dates: start: 20130627, end: 20140110
  4. OMEPRAZOLE. [Concomitant]
     Active Substance: OMEPRAZOLE
     Indication: GASTROOESOPHAGEAL REFLUX PROPHYLAXIS
     Route: 048
  5. ESOMEPRAZOLE MAGNESIUM. [Concomitant]
     Active Substance: ESOMEPRAZOLE MAGNESIUM
     Indication: PRODUCT USED FOR UNKNOWN INDICATION
     Route: 048
     Dates: start: 20140108, end: 20140110

REACTIONS (1)
  - Pancreatic carcinoma [Fatal]

NARRATIVE: CASE EVENT DATE: 20140110
